FAERS Safety Report 13472636 (Version 1)
Quarter: 2017Q2

REPORT INFORMATION
  Report Type: Spontaneous
  Country: US (occurrence: US)
  Receive Date: 20170424
  Receipt Date: 20170424
  Transmission Date: 20170830
  Serious: Yes (Hospitalization)
  Sender: FDA-Public Use
  Company Number: None

PATIENT
  Age: 34 Year
  Sex: Female

DRUGS (1)
  1. MAKENA [Suspect]
     Active Substance: HYDROXYPROGESTERONE CAPROATE
     Indication: PREMATURE LABOUR
     Dosage: Q WEEKLY IM INJECTIONS
     Route: 030

REACTIONS (10)
  - Injection site urticaria [None]
  - Pruritus generalised [None]
  - Throat irritation [None]
  - Throat tightness [None]
  - Peripheral swelling [None]
  - Rash [None]
  - Dyspnoea [None]
  - Oedema [None]
  - Wheezing [None]
  - Chest discomfort [None]

NARRATIVE: CASE EVENT DATE: 20170118
